FAERS Safety Report 13230913 (Version 1)
Quarter: 2017Q1

REPORT INFORMATION
  Report Type: Spontaneous
  Country: US (occurrence: US)
  Receive Date: 20170214
  Receipt Date: 20170214
  Transmission Date: 20170428
  Serious: No
  Sender: FDA-Public Use
  Company Number: US-CIPLA LTD.-2016US07080

PATIENT

DRUGS (3)
  1. NEURONTIN [Concomitant]
     Active Substance: GABAPENTIN
     Dosage: UNK
     Route: 065
  2. GABAPENTIN. [Suspect]
     Active Substance: GABAPENTIN
     Indication: FIBROMYALGIA
     Dosage: 300 MG, BID
     Route: 048
  3. LYRICA [Concomitant]
     Active Substance: PREGABALIN
     Indication: FIBROMYALGIA
     Dosage: 225 MG, BID
     Route: 048

REACTIONS (15)
  - Insomnia [Not Recovered/Not Resolved]
  - Paraesthesia [None]
  - Drug ineffective [Recovering/Resolving]
  - Asthenia [Not Recovered/Not Resolved]
  - Fibromyalgia [None]
  - Decreased appetite [Not Recovered/Not Resolved]
  - Fall [Recovered/Resolved]
  - Contusion [Unknown]
  - Feeling abnormal [Not Recovered/Not Resolved]
  - Balance disorder [Not Recovered/Not Resolved]
  - Diarrhoea [None]
  - Hypoacusis [None]
  - Abdominal symptom [Not Recovered/Not Resolved]
  - Nausea [None]
  - Treatment noncompliance [Unknown]

NARRATIVE: CASE EVENT DATE: 201509
